FAERS Safety Report 22306521 (Version 2)
Quarter: 2023Q2

REPORT INFORMATION
  Report Type: Spontaneous
  Country: US (occurrence: US)
  Receive Date: 20230511
  Receipt Date: 20230515
  Transmission Date: 20230721
  Serious: Yes (Other)
  Sender: FDA-Public Use
  Company Number: US-BIOGEN-2023BI01204226

PATIENT
  Sex: Female

DRUGS (1)
  1. VUMERITY [Suspect]
     Active Substance: DIROXIMEL FUMARATE
     Indication: Multiple sclerosis
     Route: 050
     Dates: start: 20210405

REACTIONS (6)
  - Rhabdomyolysis [Unknown]
  - Product dose omission issue [Unknown]
  - Muscle spasms [Unknown]
  - Gait disturbance [Unknown]
  - Peripheral nerve injury [Unknown]
  - Back pain [Unknown]
